FAERS Safety Report 8829675 (Version 1)
Quarter: 2012Q4

REPORT INFORMATION
  Report Type: 
  Country: IT (occurrence: IT)
  Receive Date: 20121008
  Receipt Date: 20121008
  Transmission Date: 20130627
  Serious: Yes (Hospitalization)
  Sender: FDA-Public Use
  Company Number: IT-ROCHE-1140707

PATIENT
  Age: 71 Year
  Sex: Male

DRUGS (1)
  1. ROCEFIN [Suspect]
     Indication: BRONCHOPNEUMOPATHY
     Route: 030
     Dates: start: 20120507, end: 20120507

REACTIONS (2)
  - Loss of consciousness [Recovering/Resolving]
  - Paraesthesia [Recovering/Resolving]
